FAERS Safety Report 25115952 (Version 2)
Quarter: 2025Q2

REPORT INFORMATION
  Report Type: Spontaneous
  Country: US (occurrence: US)
  Receive Date: 20250325
  Receipt Date: 20250526
  Transmission Date: 20250716
  Serious: No
  Sender: SANOFI AVENTIS
  Company Number: US-SA-2025SA084549

PATIENT
  Age: 45 Year
  Sex: Male
  Weight: 111 kg

DRUGS (24)
  1. DUPIXENT [Suspect]
     Active Substance: DUPILUMAB
     Indication: Asthma
     Route: 058
  2. DUPIXENT [Suspect]
     Active Substance: DUPILUMAB
     Dosage: 300 MG, QOW
     Route: 058
  3. ROBAXIN [Concomitant]
     Active Substance: METHOCARBAMOL
     Dosage: 1 TABLET,QD
     Route: 048
     Dates: start: 20240220
  4. PROAIR HFA [Concomitant]
     Active Substance: ALBUTEROL SULFATE
     Indication: Wheezing
     Route: 055
     Dates: start: 20230426
  5. PROAIR HFA [Concomitant]
     Active Substance: ALBUTEROL SULFATE
     Indication: Dyspnoea
  6. VITAMIN C [Concomitant]
     Active Substance: ASCORBIC ACID
     Dosage: 1 TABLET, QD
     Route: 048
  7. DITROPAN XL [Concomitant]
     Active Substance: OXYBUTYNIN CHLORIDE
     Dates: start: 20220421
  8. FLOMAX [Concomitant]
     Active Substance: TAMSULOSIN HYDROCHLORIDE
     Dosage: 1 CAPSULE, DAILY
     Dates: start: 20230226
  9. DESYREL [Concomitant]
     Active Substance: TRAZODONE HYDROCHLORIDE
     Dosage: 1 TABLET, AT BEDTIME
     Route: 048
     Dates: start: 20240102
  10. SALINE [Concomitant]
     Active Substance: SODIUM CHLORIDE
     Indication: Rhinitis allergic
  11. PROTONIX [Concomitant]
     Active Substance: PANTOPRAZOLE SODIUM
     Dosage: 1 TABLET, DAILY
     Route: 048
     Dates: start: 20241101
  12. DUONEB [Concomitant]
     Active Substance: ALBUTEROL SULFATE\IPRATROPIUM BROMIDE
     Indication: Dyspnoea
     Dates: start: 20231005
  13. DUONEB [Concomitant]
     Active Substance: ALBUTEROL SULFATE\IPRATROPIUM BROMIDE
     Indication: Wheezing
  14. ADVAIR HFA [Concomitant]
     Active Substance: FLUTICASONE PROPIONATE\SALMETEROL XINAFOATE
     Dosage: 1 PUFF,BID
     Route: 055
     Dates: start: 20241101
  15. MOBIC [Concomitant]
     Active Substance: MELOXICAM
     Dosage: 1DF,QD
     Route: 048
     Dates: start: 20240102, end: 20250411
  16. SPIRIVA RESPIMAT [Concomitant]
     Active Substance: TIOTROPIUM BROMIDE
     Dosage: 2 INHALATIONS BY MOUTH,DAILY
     Route: 055
     Dates: start: 20240717
  17. PERCOCET [Concomitant]
     Active Substance: ACETAMINOPHEN\OXYCODONE HYDROCHLORIDE
     Indication: Pain
     Route: 048
     Dates: start: 20230906
  18. ZANAFLEX [Concomitant]
     Active Substance: TIZANIDINE HYDROCHLORIDE
     Dosage: 1 TABLET AT BEDTIME
     Route: 048
  19. APRESOLINE HYDROCHLORIDE [Concomitant]
     Active Substance: HYDRALAZINE HYDROCHLORIDE
     Dosage: 1 TABLET,BID
     Route: 048
     Dates: start: 20240401
  20. HYZAAR [Concomitant]
     Active Substance: HYDROCHLOROTHIAZIDE\LOSARTAN POTASSIUM
     Dosage: 1DF,QD
     Route: 048
     Dates: start: 20250121
  21. Thera-m [Concomitant]
     Dosage: 1 TABLET, DAILY
     Route: 048
  22. DEXTROMETHORPHAN HYDROBROMIDE\PROMETHAZINE HYDROCHLORIDE [Concomitant]
     Active Substance: DEXTROMETHORPHAN HYDROBROMIDE\PROMETHAZINE HYDROCHLORIDE
     Indication: Cough
     Route: 048
     Dates: start: 20250205, end: 20250310
  23. AUGMENTIN [Concomitant]
     Active Substance: AMOXICILLIN\CLAVULANATE POTASSIUM
     Dosage: 1DF,TID
     Route: 048
  24. ATROVENT [Concomitant]
     Active Substance: IPRATROPIUM BROMIDE
     Dosage: 2 SPRAYS EACH NOSTRIL 2 TIMES DAILY
     Route: 045
     Dates: start: 20250205, end: 20250421

REACTIONS (6)
  - Drug hypersensitivity [Unknown]
  - Intentional dose omission [Unknown]
  - Diarrhoea [Unknown]
  - Proctalgia [Unknown]
  - Influenza like illness [Unknown]
  - Sweat test abnormal [Unknown]

NARRATIVE: CASE EVENT DATE: 20250101
